FAERS Safety Report 14552570 (Version 1)
Quarter: 2018Q1

REPORT INFORMATION
  Report Type: Report from Study
  Country: US (occurrence: US)
  Receive Date: 20180220
  Receipt Date: 20180220
  Transmission Date: 20180509
  Serious: Yes (Hospitalization, Other)
  Sender: FDA-Public Use
  Company Number: US-BRISTOL-MYERS SQUIBB COMPANY-BMS-2018-014902

PATIENT
  Age: 57 Year
  Sex: Female
  Weight: 49 kg

DRUGS (3)
  1. NIVOLUMAB [Suspect]
     Active Substance: NIVOLUMAB
     Indication: MEDULLARY THYROID CANCER
     Dosage: 3 MG/KG, Q2WK
     Route: 042
     Dates: start: 20171229, end: 20180125
  2. ZOMETA [Concomitant]
     Active Substance: ZOLEDRONIC ACID
     Indication: PRODUCT USED FOR UNKNOWN INDICATION
     Dosage: UNK
     Route: 065
     Dates: start: 20180129
  3. IPILIMUMAB [Suspect]
     Active Substance: IPILIMUMAB
     Indication: MEDULLARY THYROID CANCER
     Dosage: 1 MG/KG, Q6WK
     Route: 042
     Dates: start: 20180111

REACTIONS (1)
  - Cholecystitis [Unknown]

NARRATIVE: CASE EVENT DATE: 20180213
